FAERS Safety Report 24882546 (Version 2)
Quarter: 2025Q1

REPORT INFORMATION
  Report Type: Report from Study
  Country: US (occurrence: US)
  Receive Date: 20250124
  Receipt Date: 20250217
  Transmission Date: 20250408
  Serious: Yes (Hospitalization, Other)
  Sender: GILEAD
  Company Number: US-GILEAD-2025-0700758

PATIENT
  Age: 64 Year
  Sex: Female

DRUGS (3)
  1. AMBRISENTAN [Suspect]
     Active Substance: AMBRISENTAN
     Indication: Pulmonary arterial hypertension
     Dosage: 10 MG, QD
     Route: 065
     Dates: start: 20211027
  2. ADEMPAS [Concomitant]
     Active Substance: RIOCIGUAT
  3. WARFARIN [Concomitant]
     Active Substance: WARFARIN

REACTIONS (4)
  - Loss of consciousness [Unknown]
  - Heart rate decreased [Unknown]
  - Cardiac pacemaker insertion [Unknown]
  - Hypotension [Unknown]
